FAERS Safety Report 6265374-8 (Version None)
Quarter: 2009Q3

REPORT INFORMATION
  Report Type: 
  Country: None (occurrence: None)
  Receive Date: 20090709
  Receipt Date: 20090702
  Transmission Date: 20100115
  Serious: Yes (Life-Threatening)
  Sender: FDA-Public Use
  Company Number: 2009-199916-NL

PATIENT
  Age: 39 Year
  Sex: Female

DRUGS (10)
  1. ROCURONIUM BROMIDE [Suspect]
     Indication: ANAESTHESIA
     Dosage: INTRAVENOUS BOLUS
     Route: 040
     Dates: start: 20081201, end: 20081201
  2. MIDAZOLAM HCL [Concomitant]
  3. FENTANYL-100 [Concomitant]
  4. PROPOFOL [Concomitant]
  5. SEVOFLURANE [Concomitant]
  6. WARFARIN SODIUM [Concomitant]
  7. ENOXAPARIN SODIUM [Concomitant]
  8. CITALOPRAM HYDROBROMIDE [Concomitant]
  9. METHOTREXATE [Concomitant]
  10. FOLIC ACID [Concomitant]

REACTIONS (5)
  - ANAPHYLACTIC SHOCK [None]
  - CARDIAC ARREST [None]
  - CHOLELITHIASIS [None]
  - PANCREATITIS [None]
  - PROCEDURAL COMPLICATION [None]
